FAERS Safety Report 7548000-7 (Version None)
Quarter: 2011Q2

REPORT INFORMATION
  Report Type: 
  Country: None (occurrence: None)
  Receive Date: 20110524
  Receipt Date: 20110216
  Transmission Date: 20111010
  Serious: No
  Sender: FDA-Public Use
  Company Number: 026550

PATIENT
  Sex: Female
  Weight: 72.6 kg

DRUGS (7)
  1. GABAPENTIN [Concomitant]
  2. METHOTREXATE [Concomitant]
  3. OMEPRAZOLE [Concomitant]
  4. CIMZIA [Suspect]
     Indication: RHEUMATOID ARTHRITIS
     Dosage: 400 MG 1X/MONTH SUBCUTANEOUS
     Route: 058
     Dates: start: 20110110
  5. HYDROCORTISONE [Concomitant]
  6. LISINOPRIL [Concomitant]
  7. TRAZODONE HCL [Concomitant]

REACTIONS (2)
  - INFLUENZA LIKE ILLNESS [None]
  - VISION BLURRED [None]
